FAERS Safety Report 14934751 (Version 1)
Quarter: 2018Q2

REPORT INFORMATION
  Report Type: Spontaneous
  Country: US (occurrence: US)
  Receive Date: 20180524
  Receipt Date: 20180524
  Transmission Date: 20180711
  Serious: No
  Sender: FDA-Public Use
  Company Number: US-BIOGEN-2018BI00580915

PATIENT
  Sex: Female

DRUGS (1)
  1. PLEGRIDY [Suspect]
     Active Substance: PEGINTERFERON BETA-1A
     Indication: MULTIPLE SCLEROSIS
     Route: 065
     Dates: start: 20170720, end: 20171124

REACTIONS (7)
  - Injection site erythema [Recovered/Resolved]
  - Influenza like illness [Recovered/Resolved]
  - Injection site inflammation [Recovered/Resolved]
  - Injection site discolouration [Recovered/Resolved]
  - Injection site reaction [Recovered/Resolved]
  - Depression [Recovered/Resolved]
  - Injection site swelling [Recovered/Resolved]
